FAERS Safety Report 7399309-1 (Version None)
Quarter: 2011Q1

REPORT INFORMATION
  Report Type: 
  Country: None (occurrence: None)
  Receive Date: 20110328
  Receipt Date: 20110315
  Transmission Date: 20110831
  Serious: Yes (Life-Threatening)
  Sender: FDA-Public Use
  Company Number: 2011CP000037

PATIENT
  Age: 16 Month
  Sex: Male

DRUGS (2)
  1. PERFALGAN (PARACETAMOL) [Suspect]
     Indication: PYREXIA
     Dosage: 1 ML/KG, IV
     Route: 042
  2. AMPICILLIN [Suspect]
     Dosage: IV
     Route: 042

REACTIONS (3)
  - CONVULSION [None]
  - RESUSCITATION [None]
  - ANAPHYLACTIC REACTION [None]
